FAERS Safety Report 10900301 (Version 1)
Quarter: 2015Q1

REPORT INFORMATION
  Report Type: Other
  Country: IT (occurrence: IT)
  Receive Date: 20150310
  Receipt Date: 20150310
  Transmission Date: 20150721
  Serious: Yes (Other)
  Sender: FDA-Public Use
  Company Number: IT-SUN PHARMACEUTICAL INDUSTRIES LTD-2014SUN00092

PATIENT

DRUGS (2)
  1. OLANZAPINE 5 MG TABLETS [Suspect]
     Active Substance: OLANZAPINE
     Indication: BIPOLAR DISORDER
     Dosage: 5 MG, OD
     Route: 048
     Dates: start: 20131001, end: 20131215
  2. MIRTAZAPINA MYLAN GENERICS - ^30 MG^ 30 COMPRESSE RIVESTITE CON FILM V [Concomitant]
     Dosage: 30 MG, UNK
     Route: 048

REACTIONS (2)
  - Bipolar disorder [Recovering/Resolving]
  - Product measured potency issue [Recovering/Resolving]

NARRATIVE: CASE EVENT DATE: 20131101
